FAERS Safety Report 4476785-5 (Version None)
Quarter: 2004Q4

REPORT INFORMATION
  Report Type: 
  Country: None (occurrence: None)
  Receive Date: 20041013
  Receipt Date: 20040923
  Transmission Date: 20050328
  Serious: Yes (Other)
  Sender: FDA-Public Use
  Company Number: USA020515150

PATIENT
  Age: 72 Year
  Sex: Female
  Weight: 58 kg

DRUGS (2)
  1. HUMULIN L [Suspect]
     Indication: DIABETES MELLITUS
     Dosage: 20 U/1 DAY
     Dates: start: 19650101
  2. LENTE ILETIN (BEEF-PORK) INSULIN ZINC [Suspect]
     Indication: DIABETES MELLITUS
     Dates: start: 19650101, end: 19990101

REACTIONS (5)
  - BLINDNESS [None]
  - BLOOD GLUCOSE DECREASED [None]
  - GLAUCOMA [None]
  - MACULAR DEGENERATION [None]
  - RETINAL HAEMORRHAGE [None]
